FAERS Safety Report 7648729-6 (Version None)
Quarter: 2011Q3

REPORT INFORMATION
  Report Type: 
  Country: None (occurrence: None)
  Receive Date: 20110801
  Receipt Date: 20110722
  Transmission Date: 20111222
  Serious: Yes (Hospitalization, Other)
  Sender: FDA-Public Use
  Company Number: PHHY2009CA23789

PATIENT
  Sex: Female

DRUGS (1)
  1. SANDOSTATIN LAR [Suspect]
     Indication: ACROMEGALY
     Dosage: 30 MG, EVERY 4 WEEKS
     Route: 030
     Dates: start: 20010108

REACTIONS (6)
  - POLYP [None]
  - ARTHRALGIA [None]
  - URINARY TRACT INFECTION [None]
  - CHONDROCALCINOSIS PYROPHOSPHATE [None]
  - CYSTITIS [None]
  - OEDEMA PERIPHERAL [None]
